FAERS Safety Report 8606747 (Version 2)
Quarter: 2013Q3

REPORT INFORMATION
  Report Type: Spontaneous
  Country: US (occurrence: US)
  Receive Date: 20120611
  Receipt Date: 20130724
  Transmission Date: 20140515
  Serious: Yes (Hospitalization)
  Sender: FDA-Public Use
  Company Number: US-ASTRAZENECA-2012SE34509

PATIENT
  Age: 66 Year
  Sex: Female

DRUGS (11)
  1. NEXIUM [Suspect]
     Indication: ABDOMINAL PAIN UPPER
     Route: 048
     Dates: start: 1995
  2. NEXIUM [Suspect]
     Indication: GASTROOESOPHAGEAL REFLUX DISEASE
     Route: 048
     Dates: start: 1995
  3. PREVACID OTC [Concomitant]
     Indication: GASTROOESOPHAGEAL REFLUX DISEASE
     Dates: start: 1990
  4. TUMS [Concomitant]
  5. ALKA-SELTZER [Concomitant]
  6. MILK OF MAGNESIA [Concomitant]
  7. GAVISCON [Concomitant]
  8. PEPTO BISMOL [Concomitant]
  9. MYLANTA [Concomitant]
  10. ROLAIDS [Concomitant]
     Dosage: AS NEEDED
  11. LISINOPRIL [Concomitant]

REACTIONS (6)
  - Cardiac disorder [Unknown]
  - Osteoporosis [Unknown]
  - Multiple fractures [Unknown]
  - Arthritis [Unknown]
  - Diarrhoea [Unknown]
  - Depression [Unknown]
